FAERS Safety Report 8839936 (Version 1)
Quarter: 2012Q4

REPORT INFORMATION
  Report Type: Report from Study
  Country: JP (occurrence: JP)
  Receive Date: 20121015
  Receipt Date: 20121015
  Transmission Date: 20130627
  Serious: Yes (Life-Threatening, Hospitalization, Other)
  Sender: FDA-Public Use
  Company Number: JP-CELGENEUS-087-50794-12092160

PATIENT
  Age: 75 Year
  Sex: Male
  Weight: 56 kg

DRUGS (28)
  1. VIDAZA [Suspect]
     Indication: MYELODYSPLASTIC SYNDROME
     Dosage: 75 milligram/sq. meter
     Route: 058
     Dates: start: 20120305, end: 20120309
  2. VIDAZA [Suspect]
     Dosage: 75 milligram/sq. meter
     Route: 058
     Dates: start: 20120416, end: 20120420
  3. VIDAZA [Suspect]
     Dosage: 75 milligram/sq. meter
     Route: 058
     Dates: start: 20120517, end: 20120522
  4. GASLON N OD [Concomitant]
     Indication: DRUG USE FOR UNKNOWN INDICATION
     Dosage: 4 Milligram
     Route: 048
     Dates: start: 20120305, end: 20120607
  5. MAGMITT [Concomitant]
     Indication: DRUG USE FOR UNKNOWN INDICATION
     Route: 065
     Dates: end: 20120607
  6. GENINAX [Concomitant]
     Indication: DRUG USE FOR UNKNOWN INDICATION
     Route: 065
     Dates: start: 20120301, end: 20120307
  7. TAKEPRON [Concomitant]
     Indication: DRUG USE FOR UNKNOWN INDICATION
     Route: 065
     Dates: start: 20120305, end: 20120607
  8. ALLOPURINOL [Concomitant]
     Indication: DRUG USE FOR UNKNOWN INDICATION
     Route: 065
     Dates: start: 20120305, end: 20120607
  9. MIYA-BM [Concomitant]
     Indication: DRUG USE FOR UNKNOWN INDICATION
     Route: 065
     Dates: start: 20120305, end: 20120607
  10. KYTRIL [Concomitant]
     Indication: DRUG USE FOR UNKNOWN INDICATION
     Route: 065
     Dates: start: 20120505, end: 20120509
  11. KYTRIL [Concomitant]
     Route: 065
     Dates: start: 20120517, end: 20120522
  12. DIOVAN [Concomitant]
     Indication: DRUG USE FOR UNKNOWN INDICATION
     Route: 065
     Dates: end: 20120607
  13. HIRUDOID [Concomitant]
     Indication: DRUG USE FOR UNKNOWN INDICATION
     Route: 065
     Dates: start: 20120313
  14. CRAVIT [Concomitant]
     Indication: DRUG USE FOR UNKNOWN INDICATION
     Route: 065
     Dates: start: 20120404, end: 20120404
  15. FLOMOX [Concomitant]
     Indication: DRUG USE FOR UNKNOWN INDICATION
     Route: 065
     Dates: start: 20120405, end: 20120412
  16. ALLELOCK [Concomitant]
     Indication: DRUG USE FOR UNKNOWN INDICATION
     Route: 065
     Dates: start: 20120417, end: 20120420
  17. GENTACIN [Concomitant]
     Indication: DRUG USE FOR UNKNOWN INDICATION
     Route: 065
     Dates: start: 20120414
  18. METRONIDAZOLE [Concomitant]
     Indication: DRUG USE FOR UNKNOWN INDICATION
     Route: 065
     Dates: start: 20120425, end: 20120509
  19. ZOSYN [Concomitant]
     Indication: DRUG USE FOR UNKNOWN INDICATION
     Route: 065
     Dates: start: 20120416, end: 20120424
  20. TARGOCID [Concomitant]
     Indication: DRUG USE FOR UNKNOWN INDICATION
     Route: 065
     Dates: start: 20120418, end: 20120421
  21. ERYTHROCIN [Concomitant]
     Indication: DRUG USE FOR UNKNOWN INDICATION
     Route: 065
     Dates: start: 20120421, end: 20120424
  22. MEROPEN [Concomitant]
     Indication: DRUG USE FOR UNKNOWN INDICATION
     Route: 065
     Dates: start: 20120425, end: 20120508
  23. SODIUM CHLORIDE [Concomitant]
     Indication: DRUG USE FOR UNKNOWN INDICATION
     Route: 065
     Dates: start: 20120428, end: 20120511
  24. VEEN-D [Concomitant]
     Indication: DRUG USE FOR UNKNOWN INDICATION
     Route: 065
     Dates: start: 20120509, end: 20120511
  25. FUNGUARD [Concomitant]
     Indication: DRUG USE FOR UNKNOWN INDICATION
     Route: 065
     Dates: start: 20120423, end: 20120528
  26. MAXIPIME [Concomitant]
     Indication: DRUG USE FOR UNKNOWN INDICATION
     Route: 065
     Dates: start: 20120525, end: 20120529
  27. AMBISOME [Concomitant]
     Indication: DRUG USE FOR UNKNOWN INDICATION
     Route: 065
     Dates: start: 20120528, end: 20120607
  28. FINIBAX [Concomitant]
     Indication: DRUG USE FOR UNKNOWN INDICATION
     Route: 065
     Dates: start: 20120529, end: 20120607

REACTIONS (4)
  - Sepsis [Recovered/Resolved]
  - Hyponatraemia [Not Recovered/Not Resolved]
  - Febrile neutropenia [Recovered/Resolved]
  - Pneumonia [Not Recovered/Not Resolved]
